FAERS Safety Report 8859455 (Version 1)
Quarter: 2012Q4

REPORT INFORMATION
  Report Type: Spontaneous
  Country: DK (occurrence: None)
  Receive Date: 20121023
  Receipt Date: 20121023
  Transmission Date: 20130627
  Serious: Yes (Hospitalization)
  Sender: FDA-Public Use
  Company Number: 2012MA012605

PATIENT
  Age: 71 Year
  Sex: Female

DRUGS (10)
  1. SERTRALINE HYDROCHLORIDE [Suspect]
     Indication: DEPRESSION
     Route: 048
     Dates: start: 20120830, end: 20120928
  2. CANDESARTAN [Concomitant]
  3. CILEXETIL [Concomitant]
  4. LACRI-LUBE [Concomitant]
  5. BECLOMETASONE [Concomitant]
  6. SODIUM [Concomitant]
  7. HYALURONATE [Concomitant]
  8. AMITRIPTYLINE [Concomitant]
  9. DOXYCYCLINE HYCLATE [Concomitant]
  10. DIAZEPAM [Concomitant]

REACTIONS (6)
  - Confusional state [None]
  - Agitation [None]
  - Hallucinations, mixed [None]
  - Hyponatraemia [None]
  - Miosis [None]
  - Autonomic neuropathy [None]
